FAERS Safety Report 5052782-6 (Version None)
Quarter: 2006Q3

REPORT INFORMATION
  Report Type: 
  Country: None (occurrence: None)
  Receive Date: 20060717
  Receipt Date: 20060706
  Transmission Date: 20061208
  Serious: Yes (Life-Threatening)
  Sender: FDA-Public Use
  Company Number: AU-ROCHE-454224

PATIENT
  Age: 3 Year
  Sex: Female
  Weight: 15 kg

DRUGS (6)
  1. ROCEPHIN [Suspect]
     Indication: DRUG USE FOR UNKNOWN INDICATION
     Route: 065
     Dates: start: 20060329, end: 20060329
  2. RULIDE [Concomitant]
  3. PREDNISOLONE [Concomitant]
  4. VENTOLIN [Concomitant]
  5. ATROVENT [Concomitant]
     Dosage: DDRUG REPORTED AS: ATROVENT NEBULISING SOLUTION.
  6. AMOXYCILLIN SODIUM [Concomitant]

REACTIONS (2)
  - RASH ERYTHEMATOUS [None]
  - SWELLING FACE [None]
